FAERS Safety Report 25661036 (Version 1)
Quarter: 2025Q3

REPORT INFORMATION
  Report Type: Report from Study
  Country: ZA (occurrence: ZA)
  Receive Date: 20250808
  Receipt Date: 20250808
  Transmission Date: 20251021
  Serious: Yes (Other)
  Sender: ALEXION PHARMACEUTICALS
  Company Number: ZA-AstraZeneca-CH-00725434A

PATIENT
  Age: 84 Year
  Sex: Male

DRUGS (7)
  1. BUDESONIDE\FORMOTEROL [Suspect]
     Active Substance: BUDESONIDE\FORMOTEROL
     Indication: Asthma
  2. DOXAZOSIN MESYLATE [Concomitant]
     Active Substance: DOXAZOSIN MESYLATE
     Indication: Benign prostatic hyperplasia
  3. ROSUVASTATIN CALCIUM [Concomitant]
     Active Substance: ROSUVASTATIN CALCIUM
     Indication: Blood cholesterol
  4. RIVAROXABAN [Concomitant]
     Active Substance: RIVAROXABAN
     Indication: Coagulopathy
  5. LOPERAMIDE [Concomitant]
     Active Substance: LOPERAMIDE
  6. RIVAROXABAN [Concomitant]
     Active Substance: RIVAROXABAN
     Indication: Coagulation time shortened
  7. UNSPECIFIED INGREDIENT [Suspect]
     Active Substance: UNSPECIFIED INGREDIENT

REACTIONS (3)
  - Neoplasm malignant [Unknown]
  - Colostomy [Unknown]
  - Cardiac operation [Unknown]
